FAERS Safety Report 15839645 (Version 4)
Quarter: 2019Q1

REPORT INFORMATION
  Report Type: Spontaneous
  Country: DE (occurrence: DE)
  Receive Date: 20190117
  Receipt Date: 20190329
  Transmission Date: 20190417
  Serious: Yes (Death, Hospitalization, Other)
  Sender: FDA-Public Use
  Company Number: DE-GILEAD-2019-0385531

PATIENT
  Age: 85 Year
  Sex: Female

DRUGS (6)
  1. EPCLUSA [Suspect]
     Active Substance: SOFOSBUVIR\VELPATASVIR
     Indication: CHRONIC HEPATITIS C
     Dosage: 1 DF
     Route: 048
     Dates: start: 20190103, end: 20190120
  2. TORASEMID [Concomitant]
     Active Substance: TORSEMIDE
  3. IODINE. [Concomitant]
     Active Substance: IODINE
  4. URSODEOXYCHOLIC ACID [Concomitant]
     Active Substance: URSODIOL
  5. LANTUS [Concomitant]
     Active Substance: INSULIN GLARGINE
  6. ENALAPRIL [Concomitant]
     Active Substance: ENALAPRIL

REACTIONS (5)
  - Metastases to peritoneum [Unknown]
  - Hepatic failure [Fatal]
  - Hepatic cirrhosis [Unknown]
  - Metastases to liver [Fatal]
  - Malignant ascites [Unknown]

NARRATIVE: CASE EVENT DATE: 20190103
